FAERS Safety Report 7524903-4 (Version None)
Quarter: 2011Q2

REPORT INFORMATION
  Report Type: 
  Country: None (occurrence: None)
  Receive Date: 20110526
  Receipt Date: 20110526
  Transmission Date: 20111010
  Serious: Yes (Other)
  Sender: FDA-Public Use
  Company Number: 2011002350

PATIENT
  Age: 51 Year
  Sex: Female

DRUGS (1)
  1. TARCEVA (ERLOTINIB TABLET) TABLET [Suspect]
     Indication: LUNG NEOPLASM MALIGNANT
     Dosage: 150 MG, QD, ORAL
     Route: 048
     Dates: start: 20100105

REACTIONS (7)
  - SUDDEN HEARING LOSS [None]
  - INGROWING NAIL [None]
  - GROWTH OF EYELASHES [None]
  - TINNITUS [None]
  - ONYCHOCLASIS [None]
  - COUGH [None]
  - ONYCHOLYSIS [None]
